FAERS Safety Report 8031285-0 (Version None)
Quarter: 2012Q1

REPORT INFORMATION
  Report Type: 
  Country: None (occurrence: None)
  Receive Date: 20120109
  Receipt Date: 20120103
  Transmission Date: 20120608
  Serious: Yes (Hospitalization)
  Sender: FDA-Public Use
  Company Number: US-GLAXOSMITHKLINE-A0886604A

PATIENT
  Age: 42 Year
  Sex: Female
  Weight: 173.6 kg

DRUGS (4)
  1. INSULIN [Concomitant]
  2. AVANDIA [Suspect]
     Indication: DIABETES MELLITUS
     Dosage: 8MG PER DAY
     Route: 048
     Dates: start: 19990801, end: 20100727
  3. VESICARE [Concomitant]
  4. ZOCOR [Concomitant]

REACTIONS (5)
  - HEART RATE DECREASED [None]
  - HEART RATE INCREASED [None]
  - CARDIAC FAILURE CONGESTIVE [None]
  - HYPERTENSION [None]
  - MYOCARDIAL ISCHAEMIA [None]
